FAERS Safety Report 9676398 (Version 1)
Quarter: 2013Q4

REPORT INFORMATION
  Report Type: Spontaneous
  Country: GB (occurrence: GB)
  Receive Date: 20131107
  Receipt Date: 20131107
  Transmission Date: 20140711
  Serious: Yes (Other)
  Sender: FDA-Public Use
  Company Number: GB-ACTAVIS-2013-20457

PATIENT
  Age: 66 Year
  Sex: Female
  Weight: 62 kg

DRUGS (1)
  1. PARACETAMOL (UNKNOWN) [Suspect]
     Indication: INFLUENZA
     Dosage: 1000 MG, UNK
     Route: 048
     Dates: start: 20131004, end: 20131007

REACTIONS (1)
  - Rash [Recovering/Resolving]
